FAERS Safety Report 21105247 (Version 1)
Quarter: 2022Q3

REPORT INFORMATION
  Report Type: Spontaneous
  Country: US (occurrence: None)
  Receive Date: 20220719
  Receipt Date: 20220719
  Transmission Date: 20221027
  Serious: Yes (unspecified)
  Sender: FDA-Public Use
  Company Number: None

PATIENT
  Age: 68 Year
  Sex: Male
  Weight: 94.5 kg

DRUGS (3)
  1. DICLOFENAC SODIUM [Suspect]
     Active Substance: DICLOFENAC SODIUM
     Indication: Pain in extremity
     Dosage: FREQUENCY : TWICE A DAY;?
     Route: 061
     Dates: start: 20220711, end: 20220712
  2. Lozartin [Concomitant]
  3. POTASSIUM [Concomitant]
     Active Substance: POTASSIUM

REACTIONS (6)
  - Peripheral swelling [None]
  - Blister [None]
  - Application site reaction [None]
  - Burning sensation [None]
  - Skin exfoliation [None]
  - Erythema [None]

NARRATIVE: CASE EVENT DATE: 20220711
